FAERS Safety Report 8788895 (Version 3)
Quarter: 2012Q4

REPORT INFORMATION
  Report Type: 
  Country: GB (occurrence: GB)
  Receive Date: 20120915
  Receipt Date: 20121221
  Transmission Date: 20130627
  Serious: Yes (Other)
  Sender: FDA-Public Use
  Company Number: GB-009507513-1209GBR002568

PATIENT
  Age: 82 Year
  Sex: Female

DRUGS (4)
  1. DEXAMETHASONE TABLETS BP  2.0MG [Suspect]
  2. TIMOPTOL [Suspect]
  3. LOTEMAX [Suspect]
     Indication: FUNGAL INFECTION
     Dosage: 1 Gtt, dose/interval : 2 / 1 days
     Route: 047
     Dates: start: 201006
  4. PREDNISOLONE [Suspect]

REACTIONS (2)
  - Diabetes mellitus [Unknown]
  - Off label use [Unknown]
